FAERS Safety Report 7952955-6 (Version None)
Quarter: 2011Q4

REPORT INFORMATION
  Report Type: 
  Country: None (occurrence: None)
  Receive Date: 20111201
  Receipt Date: 20111122
  Transmission Date: 20120403
  Serious: Yes (Other)
  Sender: FDA-Public Use
  Company Number: PHHO2011DE019734

PATIENT
  Sex: Female
  Weight: 67.8 kg

DRUGS (4)
  1. SPASMEX [Concomitant]
     Dosage: 5 MG, TID
     Dates: start: 20080101
  2. FTY [Suspect]
     Dosage: 0.5 MG, UNK
     Dates: start: 20110901, end: 20111122
  3. LEVOTHYROXINE SODIUM [Concomitant]
     Dosage: 75 MG, UNK
     Dates: start: 19850101
  4. FERROUS SULFATE TAB [Concomitant]
     Dosage: UNK
     Dates: start: 20110501

REACTIONS (1)
  - LENTIGO MALIGNA STAGE UNSPECIFIED [None]
